FAERS Safety Report 4641580-0 (Version None)
Quarter: 2005Q2

REPORT INFORMATION
  Report Type: 
  Country: None (occurrence: None)
  Receive Date: 20050420
  Receipt Date: 20050401
  Transmission Date: 20051028
  Serious: Yes (Hospitalization)
  Sender: FDA-Public Use
  Company Number: USA030946848

PATIENT
  Age: 74 Year
  Sex: Female
  Weight: 46 kg

DRUGS (15)
  1. FORTEO [Suspect]
     Indication: OSTEOPOROSIS
     Dosage: 20 UG DAY
     Dates: start: 20030819
  2. SYNTHROID [Concomitant]
  3. NEXIUM [Concomitant]
  4. PROPECIA [Concomitant]
  5. CLARITIN [Concomitant]
  6. VITAMIN E [Concomitant]
  7. VITAMIN C [Concomitant]
  8. ZINC [Concomitant]
  9. VITAMIN D [Concomitant]
  10. FOSAMAX [Concomitant]
  11. ACTONEL [Concomitant]
  12. AMOXICILLIN [Concomitant]
  13. COMBIPATCH [Concomitant]
  14. VITAMINS [Concomitant]
  15. EVISTA [Suspect]

REACTIONS (15)
  - ARTHRALGIA [None]
  - CATARACT [None]
  - FALL [None]
  - HEADACHE [None]
  - INJECTION SITE DISCOLOURATION [None]
  - INJECTION SITE ERYTHEMA [None]
  - INJECTION SITE HAEMORRHAGE [None]
  - LENTICULAR OPACITIES [None]
  - OEDEMA PERIPHERAL [None]
  - PAIN IN EXTREMITY [None]
  - PHARMACEUTICAL PRODUCT COMPLAINT [None]
  - POST PROCEDURAL COMPLICATION [None]
  - THROMBOSIS [None]
  - URINARY BLADDER POLYP [None]
  - VISION BLURRED [None]
